FAERS Safety Report 8976692 (Version 1)
Quarter: 2012Q4

REPORT INFORMATION
  Report Type: 
  Country: JP (occurrence: JP)
  Receive Date: 20121220
  Receipt Date: 20121220
  Transmission Date: 20130627
  Serious: Yes (Hospitalization)
  Sender: FDA-Public Use
  Company Number: JP-ROCHE-1004776

PATIENT
  Age: 3 None
  Sex: Female

DRUGS (19)
  1. RIVOTRIL [Suspect]
     Indication: DEPRESSION
     Dosage: Dosage is uncertain.
     Route: 048
  2. ROHYPNOL [Suspect]
     Indication: DEPRESSION
     Dosage: Dosage is uncertain.
     Route: 048
  3. LEXOTAN [Suspect]
     Indication: DEPRESSION
     Dosage: Dosage is uncertain.
     Route: 048
  4. DIAZEPAM [Suspect]
     Indication: DEPRESSION
     Dosage: Dosage is uncertain.
     Route: 048
  5. ESTAZOLAM [Suspect]
     Indication: DEPRESSION
     Dosage: Dosage is uncertain.
     Route: 048
  6. PENTOBARBITAL SODIUM [Suspect]
     Indication: DEPRESSION
     Dosage: Dosage is uncertain.
     Route: 048
  7. QUAZEPAM [Suspect]
     Indication: DEPRESSION
     Dosage: Dosage is uncertain.
     Route: 048
  8. PHENOBARBITAL [Suspect]
     Indication: DEPRESSION
     Dosage: Dosage is uncertain.
     Route: 048
  9. CLOMIPRAMINE HYDROCHLORIDE [Suspect]
     Indication: DEPRESSION
     Dosage: Dosage is uncertain.
     Route: 048
  10. OXAZOLAM [Suspect]
     Indication: DEPRESSION
     Dosage: Dosage is uncertain.
     Route: 048
  11. CLOTIAZEPAM [Suspect]
     Indication: DEPRESSION
     Dosage: Dosage is uncertain.
     Route: 048
  12. ALPRAZOLAM [Suspect]
     Indication: DEPRESSION
     Dosage: Dosage is uncertain.
     Route: 048
  13. ETIZOLAM [Suspect]
     Indication: DEPRESSION
     Dosage: Dosage is uncertain.
     Route: 048
  14. CHLORDIAZEPOXIDE [Suspect]
     Indication: DEPRESSION
     Dosage: Dosage is uncertain.
     Route: 048
  15. MEDAZEPAM [Suspect]
     Indication: PRODUCT USED FOR UNKNOWN INDICATION
     Dosage: Dosage is uncertain.
     Route: 048
  16. MEXAZOLAM [Suspect]
     Indication: DEPRESSION
     Dosage: Dosage is uncertain.
     Route: 048
  17. TANDOSPIRONE CITRATE [Suspect]
     Indication: DEPRESSION
     Dosage: Dosage is uncertain.
     Route: 048
  18. FLUTAZOLAM [Suspect]
     Indication: DEPRESSION
     Dosage: Dosage is uncertain.
     Route: 048
  19. CLOXAZOLAM [Suspect]
     Indication: DEPRESSION
     Dosage: Dosage is uncertain.
     Route: 048

REACTIONS (1)
  - Suicide attempt [Unknown]
